FAERS Safety Report 23601327 (Version 1)
Quarter: 2024Q1

REPORT INFORMATION
  Report Type: Spontaneous
  Country: US (occurrence: US)
  Receive Date: 20240306
  Receipt Date: 20240306
  Transmission Date: 20240410
  Serious: No
  Sender: FDA-Public Use
  Company Number: US-BAYER-2024A027477

PATIENT
  Age: 49 Year
  Sex: Female

DRUGS (1)
  1. MIRENA [Suspect]
     Active Substance: LEVONORGESTREL
     Indication: Uterine cervical pain
     Dosage: 20?G/DAY
     Route: 015
     Dates: start: 20240126, end: 20240219

REACTIONS (5)
  - Device dislocation [Recovered/Resolved]
  - Uterine cervical pain [Recovered/Resolved]
  - Pelvic pain [Recovered/Resolved]
  - Off label use of device [None]
  - Device use issue [None]
